FAERS Safety Report 5660939-6 (Version None)
Quarter: 2008Q1

REPORT INFORMATION
  Report Type: 
  Country: None (occurrence: None)
  Receive Date: 20080311
  Receipt Date: 20080229
  Transmission Date: 20080703
  Serious: Yes (Death, Hospitalization)
  Sender: FDA-Public Use
  Company Number: US-PFIZER INC-2008021058

PATIENT
  Age: 75 Year

DRUGS (1)
  1. LIPITOR [Suspect]

REACTIONS (4)
  - ABDOMINAL PAIN [None]
  - FATIGUE [None]
  - RENAL FAILURE [None]
  - RHABDOMYOLYSIS [None]
